FAERS Safety Report 17300041 (Version 1)
Quarter: 2020Q1

REPORT INFORMATION
  Report Type: Spontaneous
  Country: US (occurrence: US)
  Receive Date: 20200122
  Receipt Date: 20200122
  Transmission Date: 20200409
  Serious: No
  Sender: FDA-Public Use
  Company Number: US-ALLERGAN-1923296US

PATIENT
  Age: 77 Year
  Sex: Female

DRUGS (3)
  1. UNSPECIFIED DRY EYE DROPS [Concomitant]
     Indication: DRY EYE
     Dosage: UNK
  2. LUMNIF (UNSPECIFIED) [Concomitant]
     Indication: DRY EYE
     Dosage: UNK
  3. RESTASIS [Suspect]
     Active Substance: CYCLOSPORINE
     Indication: DRY EYE
     Dosage: 2 GTT, BID
     Route: 047
     Dates: start: 2018

REACTIONS (2)
  - Multiple use of single-use product [Unknown]
  - Madarosis [Not Recovered/Not Resolved]
